FAERS Safety Report 17429295 (Version 1)
Quarter: 2020Q1

REPORT INFORMATION
  Report Type: Spontaneous
  Country: US (occurrence: US)
  Receive Date: 20200201
  Receipt Date: 20200201
  Transmission Date: 20200409
  Serious: Yes (Hospitalization)
  Sender: FDA-Public Use
  Company Number: None

PATIENT
  Age: 65 Year
  Sex: Male
  Weight: 63.7 kg

DRUGS (2)
  1. 5-FLUOROURACIL (5-FU) [Suspect]
     Active Substance: FLUOROURACIL
     Dates: end: 20200110
  2. CISPLATIN. [Suspect]
     Active Substance: CISPLATIN
     Dates: start: 20200106

REACTIONS (7)
  - Mouth ulceration [None]
  - Stomatitis [None]
  - Neutropenia [None]
  - Pain [None]
  - Sleep disorder [None]
  - Pyrexia [None]
  - Hypophagia [None]

NARRATIVE: CASE EVENT DATE: 20200114
